FAERS Safety Report 25640171 (Version 1)
Quarter: 2025Q3

REPORT INFORMATION
  Report Type: Spontaneous
  Country: JP (occurrence: JP)
  Receive Date: 20250804
  Receipt Date: 20250804
  Transmission Date: 20251020
  Serious: Yes (Other)
  Sender: ALEXION PHARMACEUTICALS
  Company Number: JP-ASTRAZENECA-202507JPN025463JP

PATIENT
  Age: 81 Year
  Sex: Male

DRUGS (1)
  1. TAGRISSO [Suspect]
     Active Substance: OSIMERTINIB
     Indication: Non-small cell lung cancer
     Route: 065

REACTIONS (10)
  - Glaucoma [Unknown]
  - Asthenia [Unknown]
  - Diarrhoea [Unknown]
  - Skin fissures [Unknown]
  - Onychoclasis [Unknown]
  - Hypoaesthesia [Unknown]
  - Dyspnoea [Unknown]
  - Arthralgia [Unknown]
  - Neck pain [Unknown]
  - Nail disorder [Unknown]
